FAERS Safety Report 7944850-3 (Version None)
Quarter: 2011Q4

REPORT INFORMATION
  Report Type: 
  Country: None (occurrence: None)
  Receive Date: 20111129
  Receipt Date: 20101207
  Transmission Date: 20120403
  Serious: No
  Sender: FDA-Public Use
  Company Number: US-MYLANLABS-2010S1022593

PATIENT
  Sex: Female

DRUGS (3)
  1. AMLODIPINE BESYLATE [Suspect]
     Indication: BLOOD PRESSURE
     Route: 048
     Dates: start: 20101101
  2. PROZAC [Concomitant]
  3. ABILIFY [Concomitant]

REACTIONS (1)
  - ERUCTATION [None]
